FAERS Safety Report 10012282 (Version 1)
Quarter: 2014Q1

REPORT INFORMATION
  Report Type: Spontaneous
  Country: US (occurrence: None)
  Receive Date: 20140313
  Receipt Date: 20140313
  Transmission Date: 20141002
  Serious: No
  Sender: FDA-Public Use
  Company Number: None

PATIENT
  Age: 26 Year
  Sex: Female
  Weight: 63.5 kg

DRUGS (2)
  1. VYBRIID 10 MG [Suspect]
     Indication: DEPRESSION
     Dosage: 1 ONCE DAILY
     Route: 048
  2. VYBRIID 10 MG [Suspect]
     Indication: ANXIETY
     Dosage: 1 ONCE DAILY
     Route: 048

REACTIONS (14)
  - Dizziness [None]
  - Euphoric mood [None]
  - Diarrhoea [None]
  - Panic attack [None]
  - Memory impairment [None]
  - Anxiety [None]
  - Flashback [None]
  - Feeling abnormal [None]
  - Haemorrhage [None]
  - Pain [None]
  - Fear [None]
  - Crying [None]
  - Paraesthesia [None]
  - Headache [None]
